FAERS Safety Report 10802588 (Version 3)
Quarter: 2015Q1

REPORT INFORMATION
  Report Type: Spontaneous
  Country: IE (occurrence: IE)
  Receive Date: 20150217
  Receipt Date: 20150317
  Transmission Date: 20150721
  Serious: Yes (Other)
  Sender: FDA-Public Use
  Company Number: PHFR2015IE001459

PATIENT
  Sex: Male

DRUGS (2)
  1. PREGABALIN. [Concomitant]
     Active Substance: PREGABALIN
     Indication: ANXIETY
     Dosage: 75 MG, BID
     Route: 048
     Dates: start: 20141210
  2. CLOZARIL [Suspect]
     Active Substance: CLOZAPINE
     Indication: SCHIZOPHRENIA
     Dosage: 350 MG, QD
     Route: 048
     Dates: start: 20150109

REACTIONS (1)
  - Liver function test abnormal [Recovering/Resolving]
